FAERS Safety Report 9704538 (Version 1)
Quarter: 2013Q4

REPORT INFORMATION
  Report Type: Spontaneous
  Country: CA (occurrence: CA)
  Receive Date: 20131122
  Receipt Date: 20131122
  Transmission Date: 20140711
  Serious: Yes (Disabling)
  Sender: FDA-Public Use
  Company Number: CA-GILEAD-2013-0088437

PATIENT
  Age: 83 Year
  Sex: Female

DRUGS (9)
  1. AMBRISENTAN [Suspect]
     Indication: PRODUCT USED FOR UNKNOWN INDICATION
     Dosage: 5MG PER DAY
     Route: 048
  2. ACTONEL [Concomitant]
  3. L-THYROXINE                        /00068001/ [Concomitant]
  4. LASIX                              /00032601/ [Concomitant]
  5. METOPROLOL [Concomitant]
  6. SPIRIVA [Concomitant]
  7. SYMBICORT [Concomitant]
     Route: 055
  8. VENTOLIN                           /00139501/ [Concomitant]
  9. WARFARIN [Concomitant]

REACTIONS (3)
  - Increased upper airway secretion [Not Recovered/Not Resolved]
  - Joint swelling [Not Recovered/Not Resolved]
  - Dyspnoea [Not Recovered/Not Resolved]
